FAERS Safety Report 9950306 (Version 1)
Quarter: 2014Q1

REPORT INFORMATION
  Report Type: Spontaneous
  Country: US (occurrence: US)
  Receive Date: 20140304
  Receipt Date: 20140304
  Transmission Date: 20141002
  Serious: Yes (Other)
  Sender: FDA-Public Use
  Company Number: US-SA-2014SA025718

PATIENT
  Sex: Male

DRUGS (2)
  1. ELIGARD [Suspect]
     Route: 065
     Dates: start: 201311, end: 201312
  2. ELIGARD [Suspect]
     Route: 065
     Dates: start: 201312

REACTIONS (3)
  - Gait disturbance [Not Recovered/Not Resolved]
  - Pain in extremity [Not Recovered/Not Resolved]
  - Arthralgia [Not Recovered/Not Resolved]
